FAERS Safety Report 9075089 (Version 1)
Quarter: 2013Q1

REPORT INFORMATION
  Report Type: Spontaneous
  Country: US (occurrence: US)
  Receive Date: 20130129
  Receipt Date: 20130129
  Transmission Date: 20140127
  Serious: Yes (Other)
  Sender: FDA-Public Use
  Company Number: US-BAYER-2013-007399

PATIENT
  Age: 73 Year
  Sex: Male
  Weight: 78.91 kg

DRUGS (9)
  1. BAYER ASPIRIN REGIMEN ADULT LOW STRENGTH [Suspect]
     Indication: TRANSIENT ISCHAEMIC ATTACK
     Dosage: 1 DF, BID
     Route: 048
     Dates: start: 2006
  2. PRILOSEC [Concomitant]
  3. DILANTIN [Concomitant]
  4. METFORMIN [Concomitant]
  5. JANUVIA [Concomitant]
  6. PRAVASTATIN [Concomitant]
  7. FISH OIL [Concomitant]
  8. CENTRUM [Concomitant]
  9. AMLODIPINE [Concomitant]

REACTIONS (1)
  - Ulcer [Not Recovered/Not Resolved]
